FAERS Safety Report 19727835 (Version 1)
Quarter: 2021Q3

REPORT INFORMATION
  Report Type: Spontaneous
  Country: DE (occurrence: DE)
  Receive Date: 20210820
  Receipt Date: 20210820
  Transmission Date: 20211014
  Serious: Yes (Hospitalization, Congenital Anomaly, Other)
  Sender: FDA-Public Use
  Company Number: DE-AUROBINDO-AUR-APL-2014-01886

PATIENT
  Age: 1 Day
  Sex: Female
  Weight: 2.5 kg

DRUGS (4)
  1. VOMEX A [Suspect]
     Active Substance: DIMENHYDRINATE
     Indication: MORNING SICKNESS
     Dosage: UNK
     Route: 064
  2. FOLIC ACID. [Concomitant]
     Active Substance: FOLIC ACID
     Indication: PROPHYLAXIS OF NEURAL TUBE DEFECT
     Dosage: UNK
     Route: 064
     Dates: end: 20120917
  3. LAMOTRIGINE TABLETS 100MG [Suspect]
     Active Substance: LAMOTRIGINE
     Indication: BIPOLAR DISORDER RELAPSE PROPHYLAXIS
     Dosage: 100 MG,ONCE A DAY,
     Route: 064
     Dates: start: 20120505, end: 20130124
  4. VENLAFAXINE [Suspect]
     Active Substance: VENLAFAXINE HYDROCHLORIDE
     Indication: DEPRESSION
     Dosage: 150 MG,ONCE A DAY,
     Route: 064
     Dates: start: 20120505, end: 20130124

REACTIONS (4)
  - Foetal heart rate deceleration abnormality [Unknown]
  - Ventricular septal defect [Not Recovered/Not Resolved]
  - Atrial septal defect [Recovering/Resolving]
  - Foetal exposure during pregnancy [Unknown]

NARRATIVE: CASE EVENT DATE: 20130124
